FAERS Safety Report 4749757-0 (Version None)
Quarter: 2005Q3

REPORT INFORMATION
  Report Type: 
  Country: None (occurrence: None)
  Receive Date: 20050819
  Receipt Date: 20050819
  Transmission Date: 20060218
  Serious: Yes (Hospitalization)
  Sender: FDA-Public Use
  Company Number: None

PATIENT
  Sex: Female
  Weight: 68.5 kg

DRUGS (8)
  1. AMARYL [Suspect]
     Indication: DIABETES MELLITUS NON-INSULIN-DEPENDENT
     Dosage: 1 MG ONCE DAILY PO
     Route: 048
  2. ACTONEL [Concomitant]
  3. NIASPAN [Concomitant]
  4. PRAVACHOL [Concomitant]
  5. ACTOS [Concomitant]
  6. ZOLOFT [Concomitant]
  7. NAMENDA [Concomitant]
  8. ASPIRIN [Concomitant]

REACTIONS (3)
  - CEREBROVASCULAR ACCIDENT [None]
  - HYPOAESTHESIA [None]
  - THROMBOCYTOPENIA [None]
